FAERS Safety Report 23873488 (Version 1)
Quarter: 2024Q2

REPORT INFORMATION
  Report Type: Spontaneous
  Country: TN (occurrence: TN)
  Receive Date: 20240520
  Receipt Date: 20240520
  Transmission Date: 20240716
  Serious: Yes (Hospitalization)
  Sender: FDA-Public Use
  Company Number: TN-MYLANLABS-2024M1044149

PATIENT
  Age: 38 Year
  Sex: Male

DRUGS (7)
  1. CLOZAPINE [Suspect]
     Active Substance: CLOZAPINE
     Indication: Bipolar disorder
     Dosage: 25 MILLIGRAM, QD (25MG/ DAY)
     Route: 048
     Dates: start: 20240215
  2. CLOZAPINE [Suspect]
     Active Substance: CLOZAPINE
     Dosage: 300 MILLIGRAM, QD (300MG/DAY 1 TAB MORNING+2 TABS EVENING)
     Route: 048
     Dates: start: 20240416, end: 20240424
  3. VALPROATE SODIUM [Concomitant]
     Active Substance: VALPROATE SODIUM
     Dosage: 2 DOSAGE FORM, BID (2 TABS X2 PER DAY)
     Route: 048
  4. CHLORPROMAZINE [Concomitant]
     Active Substance: CHLORPROMAZINE
     Dosage: 100 MILLIGRAM, BID(1 TAB X2 PER DAY)
     Route: 048
  5. BROMAZEPAM [Concomitant]
     Active Substance: BROMAZEPAM
     Dosage: 6 MILLIGRAM, QD (HALF A TAB MORNING +1 TAB EVENING)
     Route: 048
  6. Esoprex [Concomitant]
     Dosage: 100 MILLIGRAM, AM (1 TAB PER DAY ON  MORNING)
     Route: 048
  7. OXAZEPAM [Concomitant]
     Active Substance: OXAZEPAM
     Dosage: 50 MILLIGRAM, BID (1 TAB X2 PAR DAY)
     Route: 048

REACTIONS (2)
  - Pulmonary embolism [Recovering/Resolving]
  - Off label use [Unknown]

NARRATIVE: CASE EVENT DATE: 20240215
